FAERS Safety Report 19460727 (Version 1)
Quarter: 2021Q2

REPORT INFORMATION
  Report Type: Spontaneous
  Country: None (occurrence: US)
  Receive Date: 20210625
  Receipt Date: 20210625
  Transmission Date: 20210717
  Serious: Yes (Other)
  Sender: FDA-Public Use
  Company Number: US-GLAXOSMITHKLINE-US2021GSK137068

PATIENT
  Sex: Male

DRUGS (6)
  1. ZANTAC [Suspect]
     Active Substance: RANITIDINE HYDROCHLORIDE
     Indication: DYSPEPSIA
     Dosage: 20MG|BOTH
     Route: 065
     Dates: start: 200805, end: 201202
  2. RANITIDINE CAPSULE [Suspect]
     Active Substance: RANITIDINE
     Indication: DYSPEPSIA
     Dosage: 20MG|BOTH
     Route: 065
     Dates: start: 200805, end: 201202
  3. RANITIDINE. [Suspect]
     Active Substance: RANITIDINE
     Indication: DYSPEPSIA
     Dosage: 20MG|PRESCRIPTION
     Route: 065
     Dates: start: 200805, end: 201202
  4. ZANTAC [Suspect]
     Active Substance: RANITIDINE HYDROCHLORIDE
     Indication: DYSPEPSIA
     Dosage: 20MG|BOTH
     Route: 065
     Dates: start: 200805, end: 201202
  5. RANITIDINE. [Suspect]
     Active Substance: RANITIDINE
     Indication: DYSPEPSIA
     Dosage: 20MG|PRESCRIPTION
     Route: 065
     Dates: start: 200805, end: 201202
  6. ZANTAC [Suspect]
     Active Substance: RANITIDINE HYDROCHLORIDE
     Indication: DYSPEPSIA
     Dosage: 20MG|BOTH
     Route: 065
     Dates: start: 200805, end: 201202

REACTIONS (4)
  - Gastrointestinal carcinoma [Unknown]
  - Oesophageal carcinoma [Unknown]
  - Gastric cancer [Unknown]
  - Colorectal cancer [Unknown]
